FAERS Safety Report 23398571 (Version 1)
Quarter: 2024Q1

REPORT INFORMATION
  Report Type: Spontaneous
  Country: ME (occurrence: ME)
  Receive Date: 20240112
  Receipt Date: 20240112
  Transmission Date: 20240409
  Serious: Yes (Other)
  Sender: FDA-Public Use
  Company Number: ME-BAYER-2024A005123

PATIENT
  Age: 55 Year
  Sex: Female

DRUGS (1)
  1. ULTRAVIST [Suspect]
     Active Substance: IOPROMIDE
     Indication: Computerised tomogram
     Dosage: 80 ML, ONCE
     Route: 042
     Dates: start: 20240104, end: 20240104

REACTIONS (4)
  - Malaise [None]
  - Dyspnoea [None]
  - Asthenia [None]
  - Myalgia [None]

NARRATIVE: CASE EVENT DATE: 20240104
